FAERS Safety Report 20645172 (Version 1)
Quarter: 2022Q1

REPORT INFORMATION
  Report Type: Spontaneous
  Country: GB (occurrence: GB)
  Receive Date: 20220328
  Receipt Date: 20220328
  Transmission Date: 20220423
  Serious: Yes (Other)
  Sender: FDA-Public Use
  Company Number: GB-MHRA-MED-202203130534356970-HEOM8

PATIENT
  Age: 42 Year
  Sex: Female

DRUGS (6)
  1. METHYLPREDNISOLONE [Suspect]
     Active Substance: METHYLPREDNISOLONE
     Indication: Multiple sclerosis relapse
     Dosage: 500 MG, 1X/DAY
     Dates: start: 20220310
  2. ALUMINUM CHLOROHYDRATE [Suspect]
     Active Substance: ALUMINUM CHLOROHYDRATE
     Indication: Multiple sclerosis relapse
     Dosage: 500 MG, 1X/DAY
     Dates: start: 20220310
  3. SULFUR [Suspect]
     Active Substance: SULFUR
     Indication: Multiple sclerosis relapse
     Dosage: 500 MG, 1X/DAY
     Dates: start: 20220310
  4. BECLOMETHASONE DIPROPIONATE [Concomitant]
     Active Substance: BECLOMETHASONE DIPROPIONATE
     Indication: Asthma
     Dosage: UNK
  5. LANSOPRAZOLE [Concomitant]
     Active Substance: LANSOPRAZOLE
     Dosage: UNK
     Dates: start: 20220311
  6. TYSABRI [Concomitant]
     Active Substance: NATALIZUMAB
     Indication: Multiple sclerosis
     Dosage: UNK
     Dates: start: 20210723

REACTIONS (2)
  - Tachycardia [Recovering/Resolving]
  - White blood cell count increased [Unknown]

NARRATIVE: CASE EVENT DATE: 20220312
